FAERS Safety Report 10226555 (Version 1)
Quarter: 2014Q2

REPORT INFORMATION
  Report Type: Spontaneous
  Country: US (occurrence: US)
  Receive Date: 20140609
  Receipt Date: 20140609
  Transmission Date: 20141212
  Serious: Yes (Other)
  Sender: FDA-Public Use
  Company Number: US-AMGEN-USASP2014025645

PATIENT
  Age: 60 Year
  Sex: Female

DRUGS (6)
  1. EPOGEN [Suspect]
     Indication: RENAL FAILURE ACUTE
     Dosage: UNK
     Route: 065
  2. EPOGEN [Suspect]
     Indication: RENAL FAILURE CHRONIC
  3. COLACE [Concomitant]
     Dosage: UNK
  4. VENOFER [Concomitant]
     Dosage: UNK
  5. LANTUS [Concomitant]
     Dosage: UNK
  6. NOVOLOG [Concomitant]
     Dosage: UNK

REACTIONS (2)
  - Hypersensitivity [Unknown]
  - Urticaria [Unknown]
